FAERS Safety Report 4957848-4 (Version None)
Quarter: 2006Q1

REPORT INFORMATION
  Report Type: 
  Country: None (occurrence: None)
  Receive Date: 20060324
  Receipt Date: 20060217
  Transmission Date: 20060701
  Serious: Yes (Life-Threatening, Hospitalization)
  Sender: FDA-Public Use
  Company Number: 10834

PATIENT
  Age: 63 Year
  Sex: Male

DRUGS (15)
  1. METHOTREXATE [Suspect]
     Indication: PYODERMA GANGRENOSUM
     Dosage: 7.5 MG WEEKLY PO
     Route: 048
  2. METHYLPREDNISOLONE [Suspect]
     Indication: PYODERMA GANGRENOSUM
     Dosage: 1 G DAILY IV
     Route: 042
  3. PREDNISOLONE [Suspect]
     Indication: PYODERMA GANGRENOSUM
  4. DERMOVATE [Suspect]
     Indication: PYODERMA GANGRENOSUM
  5. NEORAL [Suspect]
     Indication: PYODERMA GANGRENOSUM
     Dosage: 5 MG/KG DAILY
  6. THALIDOMIDE [Suspect]
     Indication: PYODERMA GANGRENOSUM
     Dosage: 150 MG DAILY
  7. KENALOG [Suspect]
     Indication: PYODERMA GANGRENOSUM
     Dosage: 240 MG TOTAL IL
     Route: 026
  8. KENALOG [Suspect]
     Indication: PYODERMA GANGRENOSUM
  9. MYCOPHENOLATE MOFETIL [Suspect]
     Indication: PYODERMA GANGRENOSUM
     Dosage: 500 MG BID
  10. IMMUNE GLOBULIN INTRAVENOUS (HUMAN) [Suspect]
     Indication: PYODERMA GANGRENOSUM
     Dosage: 2000 MG/KG PER_CYCLE IV
     Route: 042
  11. GRANULOCYTE-MACROPHAGE COLONY STIMULATING FACTOR [Suspect]
     Indication: PYODERMA GANGRENOSUM
     Dosage: 400 MICROGRAM DAILY SC
     Route: 058
  12. CLOFAZAMINE [Suspect]
     Indication: PYODERMA GANGRENOSUM
     Dosage: 200 MG DAILY
  13. ANTIBIOTICS [Suspect]
     Indication: PYODERMA GANGRENOSUM
  14. CELLCEPT [Suspect]
     Indication: PYODERMA GANGRENOSUM
     Dosage: 500 MG BID
  15. CYCLOSPORINE [Suspect]
     Indication: PYODERMA GANGRENOSUM

REACTIONS (8)
  - DIABETES MELLITUS [None]
  - DRUG INEFFECTIVE [None]
  - HAEMOGLOBIN DECREASED [None]
  - PEPTIC ULCER PERFORATION [None]
  - PERITONITIS [None]
  - POSTOPERATIVE WOUND COMPLICATION [None]
  - THERAPY NON-RESPONDER [None]
  - WOUND DEHISCENCE [None]
